FAERS Safety Report 5129881-3 (Version None)
Quarter: 2006Q4

REPORT INFORMATION
  Report Type: 
  Country: None (occurrence: None)
  Receive Date: 20061013
  Receipt Date: 20060926
  Transmission Date: 20070319
  Serious: Yes (Death, Other)
  Sender: FDA-Public Use
  Company Number: FR200607001792

PATIENT
  Age: 59 Year
  Sex: Female
  Weight: 78 kg

DRUGS (4)
  1. GEMZAR [Suspect]
     Indication: PANCREATIC CARCINOMA
     Dosage: 1920 MG, OTHER, INTRAVENOUS
     Route: 042
     Dates: start: 20051229, end: 20060112
  2. OXALIPLATIN [Concomitant]
  3. SOLU-MEDROL [Concomitant]
  4. KYTRIN (GRANISETRON) [Concomitant]

REACTIONS (3)
  - HEPATIC NEOPLASM MALIGNANT [None]
  - MALIGNANT NEOPLASM PROGRESSION [None]
  - PERIPHERAL ISCHAEMIA [None]
